FAERS Safety Report 8578789 (Version 7)
Quarter: 2013Q3

REPORT INFORMATION
  Report Type: Report from Study
  Country: US (occurrence: US)
  Receive Date: 20120524
  Receipt Date: 20130701
  Transmission Date: 20140515
  Serious: Yes (Other)
  Sender: FDA-Public Use
  Company Number: US-JNJFOC-20120514166

PATIENT
  Age: 17 Year
  Sex: Female
  Weight: 53.8 kg

DRUGS (2)
  1. INFLIXIMAB, RECOMBINANT [Suspect]
     Indication: CROHN^S DISEASE
     Route: 042
     Dates: start: 20090213, end: 20090401
  2. HUMIRA [Concomitant]
     Dates: start: 20100315

REACTIONS (1)
  - Adenocarcinoma [Recovered/Resolved]
